FAERS Safety Report 9924891 (Version 2)
Quarter: 2014Q1

REPORT INFORMATION
  Report Type: Spontaneous
  Country: JP (occurrence: JP)
  Receive Date: 20140226
  Receipt Date: 20140314
  Transmission Date: 20141002
  Serious: Yes (Other)
  Sender: FDA-Public Use
  Company Number: JP-BRISTOL-MYERS SQUIBB COMPANY-20300976

PATIENT
  Age: 66 Year
  Sex: Male

DRUGS (1)
  1. ERBITUX SOLN FOR INF 5MG/ML [Suspect]
     Indication: LARYNGEAL CANCER
     Dosage: INTERRUPTED ON 13FEB14-ONG
     Route: 041
     Dates: start: 20140206

REACTIONS (1)
  - Hypothermia [Recovered/Resolved]
